FAERS Safety Report 6266139-3 (Version None)
Quarter: 2009Q3

REPORT INFORMATION
  Report Type: 
  Country: None (occurrence: None)
  Receive Date: 20090709
  Receipt Date: 20090625
  Transmission Date: 20100115
  Serious: Yes (Hospitalization)
  Sender: FDA-Public Use
  Company Number: DSA_33923_2009

PATIENT
  Age: 72 Year
  Sex: Female

DRUGS (4)
  1. ENALAPRIL MALEATE [Suspect]
     Indication: HYPERTENSION
     Dosage: DF ORAL
     Route: 048
     Dates: end: 20090531
  2. FLUOROURACIL [Suspect]
     Indication: COLON CANCER
     Dosage: DF INTRAVENOUS (NOT OTHERWISE SPECIFIED)
     Route: 042
     Dates: start: 20090519, end: 20090519
  3. OXALIPLATIN [Suspect]
     Indication: COLON CANCER
     Dosage: DF INTRAVENOUS (NOT OTHERWISE SPECIFIED)
     Route: 042
     Dates: start: 20090519, end: 20090519
  4. DILTIAZEM HCL [Concomitant]

REACTIONS (1)
  - PANCREATITIS ACUTE [None]
